FAERS Safety Report 9462608 (Version 6)
Quarter: 2014Q1

REPORT INFORMATION
  Report Type: Report from Study
  Country: NL (occurrence: NL)
  Receive Date: 20130816
  Receipt Date: 20140218
  Transmission Date: 20141002
  Serious: Yes (Death, Life-Threatening, Hospitalization)
  Sender: FDA-Public Use
  Company Number: NL-CELGENEUS-114-C4047-13073665

PATIENT
  Age: 73 Year
  Sex: Male
  Weight: 93 kg

DRUGS (27)
  1. CC-4047 [Suspect]
     Indication: PLASMA CELL MYELOMA
     Dosage: 4 MILLIGRAM
     Route: 048
     Dates: start: 20130702, end: 20130722
  2. CC-4047 [Suspect]
     Dosage: 4 MILLIGRAM
     Route: 048
     Dates: start: 20130730, end: 20130812
  3. DEXAMETHASONE [Suspect]
     Indication: PLASMA CELL MYELOMA
     Dosage: 40 MILLIGRAM
     Route: 065
     Dates: start: 20130702, end: 20130723
  4. DEXAMETHASONE [Suspect]
     Dosage: 40 MILLIGRAM
     Route: 065
     Dates: start: 20130730, end: 20130812
  5. FLUCONAZOLE [Concomitant]
     Indication: INFECTION PROPHYLAXIS
     Dosage: 50 MILLIGRAM
     Route: 048
     Dates: start: 20121103
  6. CALCIUM CARBONATE [Concomitant]
     Indication: PLASMA CELL MYELOMA
     Route: 048
     Dates: start: 20121203
  7. ALENDRONIC ACID [Concomitant]
     Indication: PLASMA CELL MYELOMA
     Dosage: 30 MILLIGRAM
     Route: 048
     Dates: start: 20130225, end: 20130723
  8. VALACICLOVIR [Concomitant]
     Indication: INFECTION PROPHYLAXIS
     Dosage: 1000 MILLIGRAM
     Route: 048
     Dates: start: 20130425
  9. ACENOCOUMAROL [Concomitant]
     Indication: THROMBOSIS PROPHYLAXIS
     Dosage: 1 MILLIGRAM
     Route: 048
     Dates: start: 20130522
  10. OXYCODON [Concomitant]
     Indication: PAIN
     Dosage: 40 MILLIGRAM
     Route: 048
     Dates: start: 20130702
  11. FUROSEMIDE [Concomitant]
     Indication: PRODUCT USED FOR UNKNOWN INDICATION
     Dosage: 40 MILLIGRAM
     Route: 048
     Dates: start: 20130702
  12. PREDNISONE [Concomitant]
     Indication: PLASMA CELL MYELOMA
     Dosage: 10 MILLIGRAM
     Route: 048
     Dates: start: 20130722, end: 20130724
  13. PRIMPERAN [Concomitant]
     Indication: ANTIEMETIC SUPPORTIVE CARE
     Dosage: 10 MILLIGRAM
     Route: 048
     Dates: start: 20130711, end: 20130711
  14. PRIMPERAN [Concomitant]
     Dosage: 10 MILLIGRAM
     Route: 048
     Dates: start: 20130713, end: 20130713
  15. PRIMPERAN [Concomitant]
     Dosage: 20 MILLIGRAM
     Route: 048
     Dates: start: 20130707, end: 20130714
  16. OMEPRAZOLE [Concomitant]
     Indication: PROPHYLAXIS
     Dosage: 40 MILLIGRAM
     Route: 048
     Dates: start: 20130522
  17. ZOLEDRONIC ACID [Concomitant]
     Indication: PLASMA CELL MYELOMA
     Route: 041
     Dates: start: 20130719
  18. LASIX [Concomitant]
     Indication: PULMONARY OEDEMA
     Dosage: 40 MILLIGRAM
     Route: 041
     Dates: start: 20130814, end: 20130815
  19. NOVORAPID [Concomitant]
     Indication: BLOOD GLUCOSE
     Route: 061
     Dates: start: 20130816
  20. MACROGOL [Concomitant]
     Indication: CONSTIPATION PROPHYLAXIS
     Dosage: 1 SACHET
     Route: 048
     Dates: start: 20130816
  21. KCL-DRINK [Concomitant]
     Indication: HYPOKALAEMIA
     Dosage: 20 OTHER
     Route: 048
     Dates: start: 20130816
  22. PARACETAMOL [Concomitant]
     Indication: PAIN
     Dosage: 4 GRAM
     Route: 048
     Dates: start: 20130816
  23. FENTANYL [Concomitant]
     Indication: PAIN
     Route: 048
     Dates: start: 20130816
  24. NEXIUM [Concomitant]
     Indication: ULCER
     Dosage: 40 MILLIGRAM
     Route: 041
     Dates: start: 20130815
  25. BISACODYL [Concomitant]
     Indication: CONSTIPATION
     Dosage: 10 MILLIGRAM
     Route: 048
     Dates: start: 20130723, end: 20130724
  26. PREDNISOLONE [Concomitant]
     Indication: PLASMA CELL MYELOMA
     Dosage: 10 MILLIGRAM
     Route: 048
     Dates: start: 20130724
  27. NITROFURANTOIN [Concomitant]
     Indication: URINARY TRACT INFECTION
     Dosage: UNKNOWN
     Route: 048
     Dates: start: 20130811, end: 20130812

REACTIONS (3)
  - Multi-organ failure [Fatal]
  - Pseudomonal sepsis [Recovered/Resolved]
  - Neuropathy peripheral [Recovered/Resolved]
